FAERS Safety Report 20135113 (Version 1)
Quarter: 2021Q4

REPORT INFORMATION
  Report Type: Spontaneous
  Country: US (occurrence: None)
  Receive Date: 20211201
  Receipt Date: 20211201
  Transmission Date: 20220303
  Serious: No
  Sender: FDA-Public Use
  Company Number: None

PATIENT
  Sex: Male
  Weight: 74.9 kg

DRUGS (2)
  1. CYTARABINE [Suspect]
     Active Substance: CYTARABINE
     Dates: end: 20210821
  2. IDARUBICIN [Suspect]
     Active Substance: IDARUBICIN
     Dates: end: 20210821

REACTIONS (2)
  - Platelet count decreased [None]
  - Platelet transfusion [None]

NARRATIVE: CASE EVENT DATE: 20210819
